FAERS Safety Report 22320163 (Version 1)
Quarter: 2023Q2

REPORT INFORMATION
  Report Type: Spontaneous
  Country: US (occurrence: None)
  Receive Date: 20230512
  Receipt Date: 20230512
  Transmission Date: 20230721
  Serious: No
  Sender: FDA-Public Use
  Company Number: None

PATIENT
  Age: 39 Year
  Sex: Female
  Weight: 46.72 kg

DRUGS (1)
  1. FORTEO [Suspect]
     Active Substance: TERIPARATIDE
     Indication: Osteoporosis
     Dosage: INJECT 20MCG SUBCUTANEOUSLY DAILY AS DIRECTED.     ?
     Route: 058
     Dates: start: 202204

REACTIONS (3)
  - Accidental overdose [None]
  - Dehydration [None]
  - Hypothermia [None]
